FAERS Safety Report 9200048 (Version 1)
Quarter: 2013Q1

REPORT INFORMATION
  Report Type: Spontaneous
  Country: US (occurrence: US)
  Receive Date: 20130329
  Receipt Date: 20130329
  Transmission Date: 20140127
  Serious: No
  Sender: FDA-Public Use
  Company Number: US-PFIZER INC-2013100665

PATIENT
  Sex: Male

DRUGS (3)
  1. LYRICA [Suspect]
     Indication: PAIN
     Dosage: 50 MG, 1X/DAY
     Dates: start: 2012
  2. LYRICA [Suspect]
     Dosage: 100 MG, 1X/DAY
  3. MOTRIN [Concomitant]
     Indication: PAIN
     Dosage: 800 MG, UNK

REACTIONS (1)
  - Vision blurred [Recovered/Resolved]
